FAERS Safety Report 7926795-8 (Version None)
Quarter: 2011Q4

REPORT INFORMATION
  Report Type: 
  Country: None (occurrence: None)
  Receive Date: 20111118
  Receipt Date: 20111116
  Transmission Date: 20120403
  Serious: Yes (Other)
  Sender: FDA-Public Use
  Company Number: PT-JNJFOC-20111107098

PATIENT
  Sex: Female

DRUGS (7)
  1. ACECLOFENAC [Concomitant]
  2. METICORTEN [Concomitant]
  3. GOLIMUMAB [Suspect]
     Indication: RHEUMATOID ARTHRITIS
     Route: 058
     Dates: start: 20100813, end: 20110915
  4. DEDROGYL [Concomitant]
  5. PLAQUINOL TAB [Concomitant]
  6. CALCIUM [Concomitant]
  7. OMEPRAZOLE [Concomitant]

REACTIONS (3)
  - EPILEPSY [None]
  - HYPERTENSION [None]
  - IMMEDIATE POST-INJECTION REACTION [None]
